FAERS Safety Report 4421597-1 (Version None)
Quarter: 2004Q3

REPORT INFORMATION
  Report Type: 
  Country: None (occurrence: None)
  Receive Date: 20040804
  Receipt Date: 20040721
  Transmission Date: 20050211
  Serious: Yes (Hospitalization)
  Sender: FDA-Public Use
  Company Number: DE-JNJFOC-20040700700

PATIENT
  Age: 74 Year
  Sex: Female
  Weight: 70 kg

DRUGS (2)
  1. LYRINEL (OXYBUTYNIN HYDROCHLORIDE) TABLETS [Suspect]
     Indication: DRUG USE FOR UNKNOWN INDICATION
     Dosage: 10 MG, IN 1 DAY, ORAL
     Route: 048
     Dates: start: 20040304, end: 20040416
  2. CORTISONE (CORTISONE) [Concomitant]

REACTIONS (2)
  - DEHYDRATION [None]
  - GASTROENTERITIS [None]
